FAERS Safety Report 13711084 (Version 1)
Quarter: 2017Q3

REPORT INFORMATION
  Report Type: Spontaneous
  Country: US (occurrence: US)
  Receive Date: 20170701
  Receipt Date: 20170701
  Transmission Date: 20171127
  Serious: Yes (Other)
  Sender: FDA-Public Use
  Company Number: None

PATIENT
  Age: 46 Year
  Sex: Female
  Weight: 86.85 kg

DRUGS (16)
  1. GABAPENTIN. [Concomitant]
     Active Substance: GABAPENTIN
  2. IBRUPROFEN [Concomitant]
     Active Substance: IBUPROFEN
  3. CYMBALTA [Concomitant]
     Active Substance: DULOXETINE HYDROCHLORIDE
  4. ADDERALL [Concomitant]
     Active Substance: AMPHETAMINE ASPARTATE\AMPHETAMINE SULFATE\DEXTROAMPHETAMINE SACCHARATE\DEXTROAMPHETAMINE SULFATE
  5. NITROFURANTOIN. [Concomitant]
     Active Substance: NITROFURANTOIN
  6. VITAMIN E [Concomitant]
     Active Substance: .ALPHA.-TOCOPHEROL
  7. VITAMIN A [Concomitant]
     Active Substance: VITAMIN A
  8. PREDNISONE. [Suspect]
     Active Substance: PREDNISONE
     Indication: JOINT SWELLING
     Dosage: ?          OTHER STRENGTH:MG;QUANTITY:30 TABLET(S);?
     Route: 048
  9. PREDNISONE. [Suspect]
     Active Substance: PREDNISONE
     Indication: ARTHRITIS
     Dosage: ?          OTHER STRENGTH:MG;QUANTITY:30 TABLET(S);?
     Route: 048
  10. VITAMIN B12 [Concomitant]
     Active Substance: CYANOCOBALAMIN
  11. MELOXICAM. [Concomitant]
     Active Substance: MELOXICAM
  12. VITAMIN C [Concomitant]
     Active Substance: ASCORBIC ACID
  13. OXY-CODONE [Concomitant]
  14. VITAMIN D [Concomitant]
     Active Substance: CHOLECALCIFEROL
  15. ATENOLOL. [Concomitant]
     Active Substance: ATENOLOL
  16. BIOTIN BLACK KOHOSH GREEN TEA GINSENG [Concomitant]

REACTIONS (1)
  - Arthropathy [None]

NARRATIVE: CASE EVENT DATE: 20170415
